FAERS Safety Report 9665922 (Version 1)
Quarter: 2013Q4

REPORT INFORMATION
  Report Type: Spontaneous
  Country: US (occurrence: US)
  Receive Date: 20131104
  Receipt Date: 20131104
  Transmission Date: 20140711
  Serious: No
  Sender: FDA-Public Use
  Company Number: US-GLAXOSMITHKLINE-A1033972A

PATIENT
  Sex: Male

DRUGS (1)
  1. SORILUX [Suspect]

REACTIONS (1)
  - Skin irritation [Unknown]
